FAERS Safety Report 4748761-6 (Version None)
Quarter: 2005Q3

REPORT INFORMATION
  Report Type: 
  Country: None (occurrence: None)
  Receive Date: 20050819
  Receipt Date: 20050706
  Transmission Date: 20060218
  Serious: Yes (Other)
  Sender: FDA-Public Use
  Company Number: US-NOVOPROD-245396

PATIENT
  Age: 8 Year
  Sex: Male
  Weight: 21 kg

DRUGS (4)
  1. NOVOSEVEN [Suspect]
     Indication: FACTOR VII DEFICIENCY
     Dosage: 2.4 MG, BID
     Route: 042
     Dates: start: 20050504, end: 20050504
  2. NOVOSEVEN [Suspect]
     Dosage: 2.4 MG, QD
     Route: 042
     Dates: start: 20050505, end: 20050506
  3. NOVOSEVEN [Suspect]
     Dosage: UNKNOWN
     Route: 042
     Dates: end: 20050503
  4. ATEROL [Concomitant]
     Indication: ATTENTION DEFICIT/HYPERACTIVITY DISORDER
     Route: 048

REACTIONS (4)
  - COAGULATION FACTOR IX LEVEL DECREASED [None]
  - COAGULATION FACTOR VIII LEVEL DECREASED [None]
  - DRUG INEFFECTIVE [None]
  - FLUSHING [None]
